FAERS Safety Report 14109756 (Version 3)
Quarter: 2017Q4

REPORT INFORMATION
  Report Type: Spontaneous
  Country: JP (occurrence: JP)
  Receive Date: 20171020
  Receipt Date: 20171108
  Transmission Date: 20180321
  Serious: Yes (Hospitalization)
  Sender: FDA-Public Use
  Company Number: JP-BAXTER-2017BAX035673

PATIENT
  Age: 80 Year
  Sex: Male
  Weight: 54 kg

DRUGS (10)
  1. SUPRANE [Suspect]
     Active Substance: DESFLURANE
     Indication: MAINTENANCE OF ANAESTHESIA
     Route: 055
     Dates: start: 20160622, end: 20160622
  2. PROPOFOL. [Suspect]
     Active Substance: PROPOFOL
     Indication: INDUCTION OF ANAESTHESIA
     Route: 042
     Dates: start: 20160622, end: 20160622
  3. PROPOFOL. [Suspect]
     Active Substance: PROPOFOL
     Route: 042
     Dates: start: 20160629, end: 20160629
  4. ROCURONIUM [Suspect]
     Active Substance: ROCURONIUM BROMIDE
     Indication: INDUCTION OF ANAESTHESIA
     Route: 042
     Dates: start: 20160622, end: 20160622
  5. SUPRANE [Suspect]
     Active Substance: DESFLURANE
     Route: 055
     Dates: start: 20160629, end: 20160629
  6. FENTANYL. [Suspect]
     Active Substance: FENTANYL
     Route: 042
     Dates: start: 20160629, end: 20160629
  7. FENTANYL. [Suspect]
     Active Substance: FENTANYL
     Indication: INDUCTION OF ANAESTHESIA
     Route: 042
     Dates: start: 20160622, end: 20160622
  8. REMIFENTANIL [Suspect]
     Active Substance: REMIFENTANIL
     Dosage: 0.3 UG/KG/MIN
     Route: 065
     Dates: start: 20160629, end: 20160629
  9. REMIFENTANIL [Suspect]
     Active Substance: REMIFENTANIL
     Indication: MAINTENANCE OF ANAESTHESIA
     Dosage: 0.3 UG/KG/MIN
     Route: 065
     Dates: start: 20160622, end: 20160622
  10. ROCURONIUM [Suspect]
     Active Substance: ROCURONIUM BROMIDE
     Route: 042
     Dates: start: 20160629, end: 20160629

REACTIONS (1)
  - Atrioventricular block complete [Recovered/Resolved]

NARRATIVE: CASE EVENT DATE: 20160622
